FAERS Safety Report 7758826-2 (Version None)
Quarter: 2011Q3

REPORT INFORMATION
  Report Type: 
  Country: None (occurrence: None)
  Receive Date: 20110825
  Receipt Date: 20110615
  Transmission Date: 20111222
  Serious: Yes (Other)
  Sender: FDA-Public Use
  Company Number: 328008

PATIENT
  Age: 45 Year
  Sex: Male
  Weight: 105.7 kg

DRUGS (6)
  1. VICTOZA [Suspect]
     Indication: TYPE 2 DIABETES MELLITUS
     Dosage: 1.8 MG, QD, SUBCUTANEOUS
     Route: 058
     Dates: start: 20100601, end: 20110415
  2. METFORMIN /00082702/ (METFORMIN HYDROCHLORIDE) [Concomitant]
  3. LOTREL [Concomitant]
  4. THEOPHYLLINE [Concomitant]
  5. ALLOPURINOL /00003302/) (ALLOPURINOL SODIUM) [Concomitant]
  6. VYTORIN [Concomitant]

REACTIONS (1)
  - PANCREATITIS ACUTE [None]
